FAERS Safety Report 11216020 (Version 3)
Quarter: 2015Q3

REPORT INFORMATION
  Report Type: Spontaneous
  Country: FR (occurrence: FR)
  Receive Date: 20150624
  Receipt Date: 20150728
  Transmission Date: 20151125
  Serious: Yes (Hospitalization)
  Sender: FDA-Public Use
  Company Number: FR-SA-2015SA088988

PATIENT
  Age: 66 Year
  Sex: Female

DRUGS (13)
  1. CARDENSIEL [Suspect]
     Active Substance: BISOPROLOL FUMARATE
     Route: 048
     Dates: end: 201501
  2. VITAMIN K [Concomitant]
     Active Substance: PHYTONADIONE
     Dates: start: 2015
  3. CRESTOR [Suspect]
     Active Substance: ROSUVASTATIN CALCIUM
     Route: 048
     Dates: end: 201501
  4. ATARAX [Suspect]
     Active Substance: HYDROXYZINE\HYDROXYZINE HYDROCHLORIDE
     Route: 048
     Dates: end: 201501
  5. UN-ALFA [Suspect]
     Active Substance: ALFACALCIDOL
     Route: 048
     Dates: end: 201501
  6. ARANESP [Suspect]
     Active Substance: DARBEPOETIN ALFA
     Route: 065
     Dates: end: 201501
  7. KARDEGIC [Suspect]
     Active Substance: ASPIRIN LYSINE
     Route: 048
     Dates: end: 20150123
  8. PREVISCAN [Suspect]
     Active Substance: FLUINDIONE
     Route: 048
     Dates: end: 20150123
  9. TOPALGIC [Suspect]
     Active Substance: TRAMADOL
     Route: 048
     Dates: end: 201501
  10. RENAGEL [Suspect]
     Active Substance: SEVELAMER HYDROCHLORIDE
     Route: 048
     Dates: end: 201501
  11. LEXOMIL [Suspect]
     Active Substance: BROMAZEPAM
     Route: 048
     Dates: end: 201501
  12. INEXIUM [Concomitant]
     Active Substance: ESOMEPRAZOLE
     Route: 048
     Dates: end: 201501
  13. KAYEXALATE [Concomitant]
     Active Substance: SODIUM POLYSTYRENE SULFONATE
     Dosage: POWDER FOR ORAL AND RECTAL SUSPENSION
     Route: 048
     Dates: end: 201501

REACTIONS (4)
  - Haemoglobin decreased [Recovering/Resolving]
  - Rectal haemorrhage [Recovered/Resolved]
  - Small intestinal ulcer haemorrhage [Recovering/Resolving]
  - Small intestinal haemorrhage [Recovering/Resolving]

NARRATIVE: CASE EVENT DATE: 20150123
